FAERS Safety Report 10052781 (Version 1)
Quarter: 2014Q1

REPORT INFORMATION
  Report Type: Spontaneous
  Country: GB (occurrence: None)
  Receive Date: 20140331
  Receipt Date: 20140331
  Transmission Date: 20141002
  Serious: Yes (Congenital Anomaly)
  Sender: FDA-Public Use
  Company Number: AUR-APL-2014-03901

PATIENT
  Sex: 0

DRUGS (1)
  1. CITALOPRAM (CITALOPRAM) [Suspect]
     Indication: ANXIETY
     Route: 064
     Dates: start: 20111117

REACTIONS (4)
  - Fallot^s tetralogy [None]
  - Maternal drugs affecting foetus [None]
  - Neonatal disorder [None]
  - Cardiac disorder [None]
